FAERS Safety Report 7292544-2 (Version None)
Quarter: 2011Q1

REPORT INFORMATION
  Report Type: 
  Country: None (occurrence: None)
  Receive Date: 20110204
  Receipt Date: 20110119
  Transmission Date: 20110831
  Serious: Yes (Hospitalization, Other)
  Sender: FDA-Public Use
  Company Number: DSA_44796_2011

PATIENT
  Age: 8 Year
  Sex: Female

DRUGS (8)
  1. DORNER [Concomitant]
  2. ENALAPRIL MALEATE [Suspect]
     Indication: PULMONARY HYPERTENSION
     Dosage: 0.06 MG/KG QD, ORAL; 0.1 MG/KG QD,
     Route: 048
     Dates: start: 20081001, end: 20081009
  3. ENALAPRIL MALEATE [Suspect]
     Indication: PULMONARY HYPERTENSION
     Dosage: 0.06 MG/KG QD, ORAL; 0.1 MG/KG QD,
     Route: 048
     Dates: start: 20081010
  4. DIGOSIN [Concomitant]
  5. FUROSEMIDE [Concomitant]
  6. SPIRONOLACTONE [Concomitant]
  7. REVATIO [Suspect]
     Indication: PULMONARY HYPERTENSION
     Dosage: 1 MG QD, ; 2 MG/KG QD;
     Dates: start: 20081009
  8. REVATIO [Suspect]
     Indication: PULMONARY HYPERTENSION
     Dosage: 1 MG QD, ; 2 MG/KG QD;
     Dates: start: 20081002, end: 20081008

REACTIONS (2)
  - OFF LABEL USE [None]
  - EPISTAXIS [None]
